FAERS Safety Report 12228612 (Version 1)
Quarter: 2016Q1

REPORT INFORMATION
  Report Type: Spontaneous
  Country: US (occurrence: None)
  Receive Date: 20160330
  Receipt Date: 20160330
  Transmission Date: 20160526
  Serious: Yes (Life-Threatening, Hospitalization)
  Sender: FDA-Public Use
  Company Number: None

PATIENT
  Age: 65 Year
  Sex: Female
  Weight: 94.5 kg

DRUGS (1)
  1. JARDIANCE [Suspect]
     Active Substance: EMPAGLIFLOZIN
     Indication: DIABETES MELLITUS
     Route: 048
     Dates: start: 20160208, end: 20160325

REACTIONS (10)
  - Ketoacidosis [None]
  - Sepsis [None]
  - Metabolic acidosis [None]
  - Erythema [None]
  - Cellulitis [None]
  - Agitation [None]
  - Peripheral swelling [None]
  - Bronchitis [None]
  - Tachycardia [None]
  - Dehydration [None]

NARRATIVE: CASE EVENT DATE: 20160325
